FAERS Safety Report 8505535 (Version 2)
Quarter: 2013Q1

REPORT INFORMATION
  Report Type: Report from Study
  Country: JP (occurrence: JP)
  Receive Date: 20120412
  Receipt Date: 20130102
  Transmission Date: 20140127
  Serious: Yes (Death)
  Sender: FDA-Public Use
  Company Number: JP-SANOFI-AVENTIS-2012SA024865

PATIENT
  Age: 78 Year
  Sex: Male
  Weight: 47 kg

DRUGS (6)
  1. ELPLAT [Suspect]
     Indication: COLON CANCER
     Route: 041
     Dates: start: 20110706, end: 20110706
  2. ELPLAT [Suspect]
     Indication: COLON CANCER
     Route: 041
     Dates: start: 20110727, end: 20110727
  3. ELPLAT [Suspect]
     Indication: COLON CANCER
     Route: 041
     Dates: start: 20110810, end: 20110810
  4. CALCIUM LEVOFOLINATE [Concomitant]
     Dates: start: 20110706, end: 20110810
  5. 5-FU [Concomitant]
     Route: 040
     Dates: start: 20110706, end: 20110810
  6. 5-FU [Concomitant]
     Dates: start: 20110706, end: 20110810

REACTIONS (6)
  - Cardiac failure [Fatal]
  - Pneumonia [Not Recovered/Not Resolved]
  - White blood cell count decreased [Recovered/Resolved]
  - Malaise [Recovered/Resolved]
  - Neutrophil count decreased [Recovered/Resolved]
  - Dehydration [Recovered/Resolved]
